FAERS Safety Report 11396501 (Version 6)
Quarter: 2015Q4

REPORT INFORMATION
  Report Type: Spontaneous
  Country: US (occurrence: US)
  Receive Date: 20150819
  Receipt Date: 20151123
  Transmission Date: 20160304
  Serious: Yes (Other)
  Sender: FDA-Public Use
  Company Number: US-JNJFOC-20150800067

PATIENT
  Sex: Male
  Weight: 110.22 kg

DRUGS (16)
  1. FISH OIL [Concomitant]
     Active Substance: FISH OIL
     Route: 065
  2. VITAMIN B12 [Concomitant]
     Active Substance: CYANOCOBALAMIN
     Route: 065
  3. GENGRAF [Concomitant]
     Active Substance: CYCLOSPORINE
  4. BENAZEPRIL [Concomitant]
     Active Substance: BENAZEPRIL HYDROCHLORIDE
     Route: 065
     Dates: start: 20130909
  5. VIAGRA [Concomitant]
     Active Substance: SILDENAFIL CITRATE
     Route: 065
  6. TRICOR [Concomitant]
     Active Substance: FENOFIBRATE
     Route: 065
  7. VITAMIN D [Concomitant]
     Active Substance: CHOLECALCIFEROL
     Route: 065
  8. ALLEGRA [Concomitant]
     Active Substance: FEXOFENADINE HYDROCHLORIDE
     Route: 065
  9. SAW PALMETTO [Concomitant]
     Active Substance: SAW PALMETTO
     Route: 065
  10. AMLODIPINE [Concomitant]
     Active Substance: AMLODIPINE BESYLATE
     Route: 065
  11. CRESTOR [Concomitant]
     Active Substance: ROSUVASTATIN CALCIUM
     Route: 065
  12. XARELTO [Suspect]
     Active Substance: RIVAROXABAN
     Indication: CEREBROVASCULAR ACCIDENT PROPHYLAXIS
     Dosage: WITH FOOD
     Route: 048
     Dates: start: 20130923, end: 20150731
  13. XARELTO [Suspect]
     Active Substance: RIVAROXABAN
     Indication: ATRIAL FIBRILLATION
     Dosage: WITH FOOD
     Route: 048
     Dates: start: 20130923, end: 20150731
  14. OPCON-A [Concomitant]
     Active Substance: NAPHAZOLINE HYDROCHLORIDE\PHENIRAMINE MALEATE
     Route: 065
  15. BENAZEPRIL [Concomitant]
     Active Substance: BENAZEPRIL HYDROCHLORIDE
     Route: 065
  16. FLUTICASONE [Concomitant]
     Active Substance: FLUTICASONE\FLUTICASONE PROPIONATE
     Indication: MULTIPLE ALLERGIES
     Route: 045

REACTIONS (7)
  - Skin ulcer [Not Recovered/Not Resolved]
  - Back pain [Unknown]
  - Gingival bleeding [Unknown]
  - Epistaxis [Unknown]
  - Blister [Recovered/Resolved]
  - Haemorrhage [Unknown]
  - Muscular weakness [Unknown]

NARRATIVE: CASE EVENT DATE: 2013
